FAERS Safety Report 6912670-4 (Version None)
Quarter: 2010Q3

REPORT INFORMATION
  Report Type: 
  Country: None (occurrence: None)
  Receive Date: 20100806
  Receipt Date: 20080904
  Transmission Date: 20110219
  Serious: No
  Sender: FDA-Public Use
  Company Number: US-PFIZER INC-2008068858

PATIENT
  Sex: Male
  Weight: 72.57 kg

DRUGS (5)
  1. GLUCOTROL XL [Suspect]
     Indication: DIABETES MELLITUS
     Dates: start: 20030101
  2. GLUCOPHAGE [Suspect]
     Indication: BLOOD GLUCOSE INCREASED
  3. NORVASC [Concomitant]
  4. TOPROL-XL [Concomitant]
  5. PRINIVIL [Concomitant]

REACTIONS (7)
  - BLOOD GLUCOSE FLUCTUATION [None]
  - BLOOD GLUCOSE INCREASED [None]
  - DIARRHOEA [None]
  - DRUG INEFFECTIVE [None]
  - MEDICATION RESIDUE [None]
  - THYROID FUNCTION TEST ABNORMAL [None]
  - WRONG TECHNIQUE IN DRUG USAGE PROCESS [None]
